FAERS Safety Report 6191253-0 (Version None)
Quarter: 2009Q2

REPORT INFORMATION
  Report Type: 
  Country: None (occurrence: None)
  Receive Date: 20090515
  Receipt Date: 20090504
  Transmission Date: 20091009
  Serious: Yes (Death)
  Sender: FDA-Public Use
  Company Number: NZ-SANOFI-SYNTHELABO-A01200904763

PATIENT
  Age: 43 Year
  Sex: Male

DRUGS (1)
  1. ZOLPIDEM TARTRATE [Suspect]
     Indication: DRUG USE FOR UNKNOWN INDICATION
     Dosage: UNK
     Route: 048

REACTIONS (6)
  - AMNESIA [None]
  - CONFUSIONAL STATE [None]
  - FALL [None]
  - FOOT FRACTURE [None]
  - IRRITABILITY [None]
  - SOMNAMBULISM [None]
